FAERS Safety Report 23165752 (Version 1)
Quarter: 2023Q4

REPORT INFORMATION
  Report Type: Report from Study
  Country: US (occurrence: US)
  Receive Date: 20231109
  Receipt Date: 20231109
  Transmission Date: 20240110
  Serious: No
  Sender: FDA-Public Use
  Company Number: US-AstraZeneca-CH-00503665A

PATIENT
  Sex: Female

DRUGS (1)
  1. SOLIRIS [Suspect]
     Active Substance: ECULIZUMAB
     Indication: Myasthenia gravis
     Dosage: UNK
     Route: 065
     Dates: start: 20230818

REACTIONS (5)
  - Skin atrophy [Unknown]
  - Motor dysfunction [Unknown]
  - Stress [Unknown]
  - Alopecia [Unknown]
  - Headache [Recovered/Resolved]
